FAERS Safety Report 21854536 (Version 1)
Quarter: 2023Q1

REPORT INFORMATION
  Report Type: Spontaneous
  Country: US (occurrence: None)
  Receive Date: 20230111
  Receipt Date: 20230111
  Transmission Date: 20230418
  Serious: No
  Sender: FDA-Public Use
  Company Number: None

PATIENT
  Sex: Female

DRUGS (1)
  1. FINGOLIMOD [Suspect]
     Active Substance: FINGOLIMOD
     Dosage: FREQUENCY : DAILY;?
     Route: 048

REACTIONS (4)
  - Rash papular [None]
  - Rash [None]
  - Oral mucosal eruption [None]
  - Product substitution issue [None]
